FAERS Safety Report 9283765 (Version 1)
Quarter: 2013Q2

REPORT INFORMATION
  Report Type: Spontaneous
  Country: ES (occurrence: ES)
  Receive Date: 20130510
  Receipt Date: 20130510
  Transmission Date: 20140414
  Serious: Yes (Hospitalization)
  Sender: FDA-Public Use
  Company Number: PHHY2013ES025148

PATIENT
  Age: 66 Year
  Sex: Male

DRUGS (21)
  1. HIGROTONA [Suspect]
     Dosage: 1 DF (50 MG), QD
     Route: 048
     Dates: start: 2010, end: 20130202
  2. FUROSEMIDE [Interacting]
     Dosage: 2 DF (80MG), DAILY
     Route: 048
     Dates: start: 2010, end: 20130202
  3. LOSARTAN [Interacting]
     Dosage: UNK UKN, UNK
     Route: 048
     Dates: start: 2010, end: 20130202
  4. ALDACTONE [Interacting]
     Dosage: 1 DF (100 MG), QD
     Route: 048
     Dates: start: 2010, end: 20130202
  5. ENOXAPARIN [Concomitant]
     Dosage: 1 DF, A DAY(80 MG)
     Route: 058
     Dates: start: 20130124
  6. INSULIN GLARGINE [Concomitant]
     Dosage: 30 IU, A DAY
     Route: 058
  7. OMEPRAZOLE [Concomitant]
     Dosage: UNK UKN, QD
     Route: 048
  8. INSULIN ASPART [Concomitant]
     Dosage: 1 DF (16 IU), UNK
     Route: 058
  9. ATORVASTATIN [Concomitant]
     Dosage: ONCE A DAY
     Route: 048
  10. CARVEDILOL [Concomitant]
     Dosage: 2 DF, QD(12.5 MG)
     Route: 048
  11. TAMSULOSIN [Concomitant]
     Dosage: UNK UKN, QD
     Route: 048
  12. MAGNESIUM [Concomitant]
     Dosage: UNK UKN, Q72H
     Route: 048
  13. ADIRO [Concomitant]
     Dosage: 1 DF, QD(100 MG)
     Route: 048
  14. AREMIS [Concomitant]
     Dosage: 50 MG, QD
     Route: 048
  15. BOI K ASPARTICO [Concomitant]
     Dosage: UNK UKN, QD
     Route: 048
  16. DUODART [Concomitant]
     Dosage: UNK UKN, QD
     Route: 048
  17. MINITRAN [Concomitant]
     Dosage: 10 MG, PER 24 HOURS
     Route: 062
  18. PULMICORT TURBUHALER [Concomitant]
     Dosage: 400 UG, 2 DAYS
  19. SPIRIVA [Concomitant]
     Dosage: 18 UG, QD
  20. TARDYFERON [Concomitant]
     Dosage: 80 MG, BID
     Route: 048
  21. SEREVENT [Concomitant]
     Dosage: UNK UKN, UNK

REACTIONS (1)
  - Renal failure acute [Recovered/Resolved]
